FAERS Safety Report 15553924 (Version 7)
Quarter: 2020Q1

REPORT INFORMATION
  Report Type: Report from Study
  Country: CN (occurrence: CN)
  Receive Date: 20181026
  Receipt Date: 20200110
  Transmission Date: 20200409
  Serious: Yes (Hospitalization)
  Sender: FDA-Public Use
  Company Number: CN-ROCHE-2202577

PATIENT
  Age: 48 Year
  Sex: Female
  Weight: 52 kg

DRUGS (20)
  1. CARBOPLATIN. [Suspect]
     Active Substance: CARBOPLATIN
     Indication: OVARIAN CANCER
     Dosage: 6 MILLIGRAMS PER MILLILITER*MINUTE (MG/ML*MIN) ON DAY 1 OF EACH 21-DAY CYCLE FOR A TOTAL OF 6 CYCLES
     Route: 042
     Dates: start: 20180518
  2. FAMOTIDINE. [Concomitant]
     Active Substance: FAMOTIDINE
     Route: 065
     Dates: start: 20180904, end: 20180904
  3. DEXAMETHASONE SODIUM PHOSPHATE. [Concomitant]
     Active Substance: DEXAMETHASONE SODIUM PHOSPHATE
     Route: 042
     Dates: start: 20180904, end: 20180904
  4. DIPHENHYDRAMINE HYDROCHLORIDE. [Concomitant]
     Active Substance: DIPHENHYDRAMINE HYDROCHLORIDE
     Route: 065
     Dates: start: 20180927, end: 20180927
  5. ONDANSETRON HYDROCHLORIDE. [Concomitant]
     Active Substance: ONDANSETRON HYDROCHLORIDE
     Route: 065
     Dates: start: 20180927, end: 20180927
  6. DEXAMETHASONE. [Concomitant]
     Active Substance: DEXAMETHASONE
     Route: 048
     Dates: start: 20180927, end: 20180927
  7. ATEZOLIZUMAB. [Suspect]
     Active Substance: ATEZOLIZUMAB
     Indication: OVARIAN CANCER
     Dosage: ON DAY 1 OF EACH 21-DAY CYCLE (AS PER PROTOCOL).?DATE OF MOST RECENT DOSE OF ATEZOLIZUMAB PRIOR TO S
     Route: 041
     Dates: start: 20180518
  8. SODIUM LACTATE RINGER^S [Concomitant]
     Route: 065
     Dates: start: 20180927, end: 20180927
  9. DEXAMETHASONE. [Concomitant]
     Active Substance: DEXAMETHASONE
     Route: 048
     Dates: start: 20180904, end: 20180904
  10. APREPITANT. [Concomitant]
     Active Substance: APREPITANT
     Route: 065
     Dates: start: 20180904, end: 20180904
  11. APREPITANT. [Concomitant]
     Active Substance: APREPITANT
     Route: 065
     Dates: start: 20180927, end: 20180927
  12. DIPHENHYDRAMINE HYDROCHLORIDE. [Concomitant]
     Active Substance: DIPHENHYDRAMINE HYDROCHLORIDE
     Route: 065
     Dates: start: 20180904, end: 20180927
  13. COBAMAMIDE [Concomitant]
     Active Substance: COBAMAMIDE
     Route: 065
     Dates: start: 20180904, end: 20180904
  14. DEXAMETHASONE SODIUM PHOSPHATE. [Concomitant]
     Active Substance: DEXAMETHASONE SODIUM PHOSPHATE
     Route: 042
     Dates: start: 20180927, end: 20180927
  15. COBAMAMIDE [Concomitant]
     Active Substance: COBAMAMIDE
     Route: 065
     Dates: start: 20180927, end: 20180927
  16. BEVACIZUMAB. [Suspect]
     Active Substance: BEVACIZUMAB
     Indication: OVARIAN CANCER
     Dosage: DATE OF MOST RECENT DOSE OF BEVACIZUMAB (855 MG) PRIOR TO SAE ONSET: 27/SEP/2018.
     Route: 042
     Dates: start: 20180518
  17. PACLITAXEL. [Suspect]
     Active Substance: PACLITAXEL
     Indication: OVARIAN CANCER
     Dosage: ON DAY 1 OF EACH 21-DAY CYCLE (AS PER PROTOCOL).?DATE OF MOST RECENT DOSE OF PACLITAXEL (263 MG)  PR
     Route: 042
     Dates: start: 20180518
  18. ONDANSETRON HYDROCHLORIDE. [Concomitant]
     Active Substance: ONDANSETRON HYDROCHLORIDE
     Route: 065
     Dates: start: 20180904, end: 20180904
  19. SODIUM LACTATE RINGER^S [Concomitant]
     Route: 065
     Dates: start: 20180904, end: 20180904
  20. FAMOTIDINE. [Concomitant]
     Active Substance: FAMOTIDINE
     Route: 065
     Dates: start: 20180927, end: 20180927

REACTIONS (1)
  - Platelet count decreased [Recovered/Resolved]

NARRATIVE: CASE EVENT DATE: 20181003
